FAERS Safety Report 8889563 (Version 2)
Quarter: 2014Q1

REPORT INFORMATION
  Report Type: Spontaneous
  Country: JP (occurrence: JP)
  Receive Date: 20121107
  Receipt Date: 20140319
  Transmission Date: 20141002
  Serious: Yes (Death, Other)
  Sender: FDA-Public Use
  Company Number: PHHY2012JP101266

PATIENT
  Age: 54 Year
  Sex: Female

DRUGS (5)
  1. FLUDARABINE [Suspect]
     Indication: PLASMA CELL MYELOMA
     Dosage: 25 MG/M2, QD
  2. MELPHALAN [Suspect]
     Indication: PLASMA CELL MYELOMA
     Dosage: 50 MG/M2, QD
  3. IRRADIATION [Suspect]
     Indication: PLASMA CELL MYELOMA
     Dosage: 4 GY, UNK
  4. METHOTREXATE [Concomitant]
     Indication: PROPHYLAXIS AGAINST GRAFT VERSUS HOST DISEASE
  5. ACYCLOVIR [Concomitant]
     Indication: HERPES SIMPLEX
     Dosage: 1000 MG, UNK
     Route: 048

REACTIONS (5)
  - Legionella infection [Fatal]
  - Adenovirus infection [Unknown]
  - Cytomegalovirus infection [Unknown]
  - Cystitis haemorrhagic [Unknown]
  - BK virus infection [Unknown]
